FAERS Safety Report 8044539-9 (Version None)
Quarter: 2012Q1

REPORT INFORMATION
  Report Type: 
  Country: None (occurrence: None)
  Receive Date: 20120113
  Receipt Date: 20120106
  Transmission Date: 20120608
  Serious: No
  Sender: FDA-Public Use
  Company Number: US-B.I. PHARMACEUTICALS,INC./RIDGEFIELD-2011-BP-00407BP

PATIENT
  Sex: Male

DRUGS (14)
  1. CREON [Concomitant]
     Indication: INFLAMMATION
  2. PRILOSEC [Concomitant]
     Indication: GASTROOESOPHAGEAL REFLUX DISEASE
     Route: 048
     Dates: start: 20060101
  3. VITAMIN TAB [Concomitant]
     Indication: PROPHYLAXIS
  4. MAGNESIUM [Concomitant]
     Indication: ROUTINE HEALTH MAINTENANCE
     Route: 048
     Dates: start: 19900101
  5. CALCIUM [Concomitant]
     Indication: ROUTINE HEALTH MAINTENANCE
     Route: 048
     Dates: start: 19900101
  6. MULTI-VITAMIN [Concomitant]
     Indication: ROUTINE HEALTH MAINTENANCE
     Route: 048
     Dates: start: 19900101
  7. CRESTOR [Concomitant]
     Indication: BLOOD CHOLESTEROL INCREASED
     Dosage: 40 MG
     Route: 048
     Dates: start: 20080101
  8. PRADAXA [Suspect]
     Indication: ATRIAL FIBRILLATION
     Dosage: 300 MG
     Route: 048
     Dates: start: 20101101
  9. PRADAXA [Suspect]
     Dosage: 300 MG
     Route: 048
     Dates: start: 20110601
  10. BYSTOLIC [Concomitant]
     Indication: ATRIAL FIBRILLATION
  11. FISH OIL (LOVAZA) [Concomitant]
     Indication: PROPHYLAXIS
  12. TRILIPIX [Concomitant]
     Indication: BLOOD CHOLESTEROL INCREASED
  13. BYSTOLIC [Concomitant]
     Indication: HYPERTENSION
     Dosage: 5 MG
     Route: 048
     Dates: start: 20080101
  14. VITAMIN C [Concomitant]
     Indication: ROUTINE HEALTH MAINTENANCE
     Route: 048
     Dates: start: 19900101

REACTIONS (2)
  - LIMB DISCOMFORT [None]
  - NAUSEA [None]
